FAERS Safety Report 13610870 (Version 15)
Quarter: 2020Q2

REPORT INFORMATION
  Report Type: Report from Study
  Country: CA (occurrence: CA)
  Receive Date: 20170605
  Receipt Date: 20200610
  Transmission Date: 20200713
  Serious: Yes (Hospitalization, Other)
  Sender: FDA-Public Use
  Company Number: PHHY2016CA154560

PATIENT
  Age: 85 Year
  Sex: Female

DRUGS (6)
  1. INVOKANA [Concomitant]
     Active Substance: CANAGLIFLOZIN
     Indication: BLOOD GLUCOSE INCREASED
     Dosage: 100 MG, QD
     Route: 048
     Dates: start: 20161125
  2. SANDOSTATIN LAR DEPOT [Suspect]
     Active Substance: OCTREOTIDE ACETATE
     Indication: CARCINOID TUMOUR
     Dosage: 20 MG, QMO (EVERY 4 WEEKS)
     Route: 030
     Dates: start: 20161102
  3. INVOKANA [Concomitant]
     Active Substance: CANAGLIFLOZIN
     Dosage: 8 U
     Route: 058
     Dates: start: 2016
  4. INVOKANA [Concomitant]
     Active Substance: CANAGLIFLOZIN
     Dosage: 4 U, UNK
     Route: 065
     Dates: start: 20190430
  5. SANDOSTATIN [Suspect]
     Active Substance: OCTREOTIDE ACETATE
     Indication: CARCINOID TUMOUR
     Dosage: 100 UG, ONCE/SINGLE (TEST DOSE)
     Route: 058
     Dates: start: 20161026, end: 20161026
  6. LANTUS [Concomitant]
     Active Substance: INSULIN GLARGINE
     Indication: PRODUCT USED FOR UNKNOWN INDICATION
     Dosage: 8 U, (STRENGTH: 8 UNITS)
     Route: 058

REACTIONS (32)
  - Palpitations [Recovered/Resolved]
  - Abdominal pain [Unknown]
  - Musculoskeletal pain [Recovered/Resolved]
  - Malaise [Unknown]
  - Joint swelling [Unknown]
  - Hypoacusis [Unknown]
  - Hypoglycaemia [Unknown]
  - Pallor [Unknown]
  - Injection site pain [Recovered/Resolved]
  - Hypertension [Unknown]
  - Blood pressure diastolic decreased [Unknown]
  - Contusion [Unknown]
  - Abdominal pain upper [Unknown]
  - Dehydration [Unknown]
  - Dizziness [Unknown]
  - Fatigue [Unknown]
  - Blood pressure systolic increased [Unknown]
  - Syncope [Unknown]
  - Diverticulitis [Unknown]
  - Abdominal discomfort [Recovering/Resolving]
  - Loss of consciousness [Unknown]
  - Fall [Unknown]
  - Gait disturbance [Unknown]
  - Blood magnesium decreased [Unknown]
  - Peripheral swelling [Unknown]
  - Musculoskeletal stiffness [Unknown]
  - Blood glucose increased [Unknown]
  - Heart rate irregular [Unknown]
  - Hip fracture [Recovering/Resolving]
  - Dysstasia [Unknown]
  - Tachycardia [Unknown]
  - Injection site bruising [Unknown]

NARRATIVE: CASE EVENT DATE: 20161102
